FAERS Safety Report 5398108-X (Version None)
Quarter: 2007Q3

REPORT INFORMATION
  Report Type: 
  Country: None (occurrence: None)
  Receive Date: 20070726
  Receipt Date: 20070603
  Transmission Date: 20080115
  Serious: Yes (Other)
  Sender: FDA-Public Use
  Company Number: US-PURDUE-USA_2007_0028463

PATIENT
  Sex: Female

DRUGS (1)
  1. OXYCONTIN [Suspect]
     Indication: RHEUMATOID ARTHRITIS
     Dosage: UNK MG, UNK
     Route: 048
     Dates: start: 20010101, end: 20010101

REACTIONS (4)
  - GASTRIC DISORDER [None]
  - GASTROINTESTINAL DISORDER [None]
  - MAJOR DEPRESSION [None]
  - SUICIDE ATTEMPT [None]
